FAERS Safety Report 7378769-6 (Version None)
Quarter: 2011Q1

REPORT INFORMATION
  Report Type: 
  Country: None (occurrence: None)
  Receive Date: 20110328
  Receipt Date: 20110324
  Transmission Date: 20110831
  Serious: Yes (Life-Threatening, Hospitalization)
  Sender: FDA-Public Use
  Company Number: US-ASTRAZENECA-2011SE07330

PATIENT
  Age: 21162 Day
  Sex: Male
  Weight: 71.2 kg

DRUGS (5)
  1. OMEPRAZOLE [Concomitant]
  2. FISH OIL [Concomitant]
     Indication: HYPERTRIGLYCERIDAEMIA
     Route: 048
     Dates: start: 20110201
  3. ZOLOFT [Concomitant]
     Indication: ANXIETY
     Route: 048
     Dates: start: 20110120
  4. SERTRALINE HYDROCHLORIDE [Concomitant]
  5. CRESTOR [Suspect]
     Indication: HYPERCHOLESTEROLAEMIA
     Route: 048
     Dates: start: 20110201, end: 20110207

REACTIONS (9)
  - TOBACCO ABUSE [None]
  - FATIGUE [None]
  - HYPERTENSION [None]
  - HEMIPARESIS [None]
  - DYSARTHRIA [None]
  - ABASIA [None]
  - HYPOAESTHESIA [None]
  - CEREBROVASCULAR ACCIDENT [None]
  - HYPERLIPIDAEMIA [None]
